FAERS Safety Report 9397323 (Version 1)
Quarter: 2013Q3

REPORT INFORMATION
  Report Type: Spontaneous
  Country: US (occurrence: None)
  Receive Date: 20130708
  Receipt Date: 20130708
  Transmission Date: 20140515
  Serious: Yes (Other)
  Sender: FDA-Public Use
  Company Number: 251544400004

PATIENT
  Age: 17 Year
  Sex: Female

DRUGS (2)
  1. BANANA BOAT ULTRA MIST COLL ZONE SPF 30 [Suspect]
     Indication: SUNBURN
     Route: 061
     Dates: start: 20130614
  2. BANANA BOAT ULTRA MIST COLL ZONE SPF 30 [Suspect]
     Indication: PROPHYLAXIS
     Route: 061
     Dates: start: 20130614

REACTIONS (1)
  - Chemical injury [None]
